FAERS Safety Report 6537941-5 (Version None)
Quarter: 2010Q1

REPORT INFORMATION
  Report Type: 
  Country: None (occurrence: None)
  Receive Date: 20100114
  Receipt Date: 20100105
  Transmission Date: 20100710
  Serious: Yes (Hospitalization)
  Sender: FDA-Public Use
  Company Number: US-ASTRAZENECA-2010SE00546

PATIENT
  Age: 10377 Day
  Sex: Female

DRUGS (2)
  1. PULMICORT FLEXHALER [Suspect]
     Route: 055
     Dates: start: 20091130, end: 20090101
  2. XOPENEX [Concomitant]

REACTIONS (5)
  - CHEST PAIN [None]
  - DYSPNOEA [None]
  - ILL-DEFINED DISORDER [None]
  - OROPHARYNGEAL PAIN [None]
  - OXYGEN SATURATION DECREASED [None]
